FAERS Safety Report 6635291-X (Version None)
Quarter: 2010Q1

REPORT INFORMATION
  Report Type: 
  Country: None (occurrence: None)
  Receive Date: 20100315
  Receipt Date: 20100302
  Transmission Date: 20100710
  Serious: Yes (Death)
  Sender: FDA-Public Use
  Company Number: US-TYCO HEALTHCARE/MALLINCKRODT-T201000722

PATIENT
  Age: 77 Year
  Sex: Female

DRUGS (2)
  1. FENTANYL [Suspect]
     Indication: SCIATICA
     Dosage: 50 MCG/HOUR Q 48 TO 72 HOURS
     Route: 062
  2. VICODIN [Concomitant]
     Indication: SCIATICA
     Dosage: 5/500 MG, QID FOR ONE WEEK

REACTIONS (5)
  - DEATH [None]
  - DRUG ADMINISTRATION ERROR [None]
  - DRUG PRESCRIBING ERROR [None]
  - EDUCATIONAL PROBLEM [None]
  - OFF LABEL USE [None]
